FAERS Safety Report 14607372 (Version 1)
Quarter: 2018Q1

REPORT INFORMATION
  Report Type: Spontaneous
  Country: US (occurrence: US)
  Receive Date: 20180307
  Receipt Date: 20180307
  Transmission Date: 20180509
  Serious: No
  Sender: FDA-Public Use
  Company Number: US-PFIZER INC-2018093353

PATIENT
  Age: 67 Year
  Sex: Female
  Weight: 63.5 kg

DRUGS (4)
  1. ASPIRIN. [Concomitant]
     Active Substance: ASPIRIN
     Indication: STENT PLACEMENT
     Dosage: 81 MG, 1X/DAY
     Route: 048
     Dates: start: 2014
  2. ADVIL [Suspect]
     Active Substance: IBUPROFEN
     Indication: ARTHRALGIA
     Dosage: 6 DF, DAILY (6 TABLETS IN THE LAST 24 HOURS)
     Dates: start: 20180301, end: 20180302
  3. ADVIL [Suspect]
     Active Substance: IBUPROFEN
     Indication: JOINT STIFFNESS
  4. METOPROLOL. [Concomitant]
     Active Substance: METOPROLOL
     Indication: CARDIAC DISORDER
     Dosage: 25 MG, DAILY (HALF IN THE MORNING AND HALF IN THE EVENING)

REACTIONS (2)
  - Loss of personal independence in daily activities [Unknown]
  - Drug ineffective [Unknown]

NARRATIVE: CASE EVENT DATE: 201803
